FAERS Safety Report 12988439 (Version 1)
Quarter: 2016Q4

REPORT INFORMATION
  Report Type: Report from Study
  Country: US (occurrence: US)
  Receive Date: 20161130
  Receipt Date: 20161130
  Transmission Date: 20170207
  Serious: Yes (Hospitalization, Other)
  Sender: FDA-Public Use
  Company Number: US-ALEXION PHARMACEUTICALS INC.-A201609218

PATIENT
  Age: 34 Year
  Sex: Female
  Weight: 60.7 kg

DRUGS (9)
  1. CATAPRES                           /00171101/ [Concomitant]
     Active Substance: CLONIDINE
     Indication: PRODUCT USED FOR UNKNOWN INDICATION
     Dosage: 0.2 MG, BID
     Route: 048
     Dates: start: 20160220
  2. PRINZIDE [Concomitant]
     Active Substance: HYDROCHLOROTHIAZIDE\LISINOPRIL
     Indication: PRODUCT USED FOR UNKNOWN INDICATION
     Dosage: 20 MG, QD
     Route: 048
  3. HYDRALAZINE [Concomitant]
     Active Substance: HYDRALAZINE HYDROCHLORIDE
     Indication: HYPERTENSION
     Dosage: 25 MG, TID
     Route: 048
  4. AMLODIPINE [Concomitant]
     Active Substance: AMLODIPINE BESYLATE
     Indication: PRODUCT USED FOR UNKNOWN INDICATION
     Route: 065
  5. AMOXICILLIN. [Concomitant]
     Active Substance: AMOXICILLIN
     Indication: PRODUCT USED FOR UNKNOWN INDICATION
     Route: 065
  6. TENORMIN [Concomitant]
     Active Substance: ATENOLOL
     Indication: PRODUCT USED FOR UNKNOWN INDICATION
     Dosage: 25 MG, BID
     Route: 065
     Dates: start: 20160816
  7. MARIJUANA [Suspect]
     Active Substance: CANNABIS SATIVA SUBSP. INDICA TOP
     Route: 065
  8. PRINIVIL [Concomitant]
     Active Substance: LISINOPRIL
     Indication: PRODUCT USED FOR UNKNOWN INDICATION
     Dosage: 20 MG, QD
     Route: 048
     Dates: start: 20160220
  9. SOLIRIS [Suspect]
     Active Substance: ECULIZUMAB
     Indication: HAEMOLYTIC URAEMIC SYNDROME
     Route: 042

REACTIONS (31)
  - Blood glucose increased [Unknown]
  - Serum ferritin increased [Unknown]
  - Photosensitivity reaction [Unknown]
  - Normochromic normocytic anaemia [Unknown]
  - Asthenia [Unknown]
  - Nausea [Unknown]
  - Vomiting [Unknown]
  - Dyspnoea [Unknown]
  - Blood urea increased [Unknown]
  - Protein total decreased [Unknown]
  - Haematocrit decreased [Unknown]
  - Hypotension [Unknown]
  - Oedema peripheral [Unknown]
  - Peripheral swelling [Unknown]
  - Drug abuse [Unknown]
  - Glycosylated haemoglobin decreased [Unknown]
  - Syncope [Unknown]
  - Blood sodium decreased [Unknown]
  - Troponin increased [Unknown]
  - Platelet count decreased [Unknown]
  - Visual impairment [Unknown]
  - Blood creatinine increased [Unknown]
  - Blood albumin decreased [Unknown]
  - Red blood cell count decreased [Unknown]
  - Dizziness [Unknown]
  - Cardiomegaly [Unknown]
  - Vision blurred [Unknown]
  - Palpitations [Unknown]
  - Chronic kidney disease [Unknown]
  - Blood chloride decreased [Unknown]
  - Calculus urinary [Unknown]

NARRATIVE: CASE EVENT DATE: 20161009
